FAERS Safety Report 9295876 (Version 1)
Quarter: 2013Q1

REPORT INFORMATION
  Report Type: Spontaneous
  Country: US (occurrence: None)
  Receive Date: 20121220
  Receipt Date: 20121220
  Transmission Date: 20140127
  Serious: No
  Sender: FDA-Public Use
  Company Number: 1204USA02327

PATIENT
  Sex: Female

DRUGS (5)
  1. ZETIA [Suspect]
     Indication: BLOOD CHOLESTEROL INCREASED
     Route: 048
     Dates: start: 2010
  2. CRESTOR (ROSUIVASTATIN CALCIUM) [Concomitant]
  3. AGGRENX (ASPIRIN (+) DIPYRIDAMOLE) [Concomitant]
  4. SYNTHROID (LEVOTHYROXINE SODIUM) [Concomitant]
  5. CYTOMEL (LIOTHYRONINE SODIUM) [Concomitant]

REACTIONS (3)
  - Overdose [None]
  - Muscle spasms [None]
  - Blood cholesterol increased [None]
